FAERS Safety Report 10426456 (Version 1)
Quarter: 2014Q3

REPORT INFORMATION
  Report Type: Spontaneous
  Country: US (occurrence: None)
  Receive Date: 20140902
  Receipt Date: 20140902
  Transmission Date: 20150326
  Serious: Yes (Other)
  Sender: FDA-Public Use
  Company Number: None

PATIENT
  Age: 31 Year
  Sex: Female
  Weight: 53.98 kg

DRUGS (1)
  1. KLONOPIN [Suspect]
     Active Substance: CLONAZEPAM
     Indication: ENDODONTIC PROCEDURE
     Dosage: CLONAZEPAM TWICE DAILY TAKEN BY MOUTH
     Route: 048
     Dates: start: 20140703, end: 20140828

REACTIONS (9)
  - Paraesthesia [None]
  - Agoraphobia [None]
  - Bedridden [None]
  - Burning sensation [None]
  - Fatigue [None]
  - Loss of employment [None]
  - Headache [None]
  - Anxiety [None]
  - Myalgia [None]

NARRATIVE: CASE EVENT DATE: 20130703
